FAERS Safety Report 5519059-3 (Version None)
Quarter: 2007Q4

REPORT INFORMATION
  Report Type: 
  Country: None (occurrence: None)
  Receive Date: 20071116
  Receipt Date: 20071106
  Transmission Date: 20080405
  Serious: Yes (Death, Hospitalization, Other)
  Sender: FDA-Public Use
  Company Number: FR-BRISTOL-MYERS SQUIBB COMPANY-13970058

PATIENT
  Age: 81 Year
  Sex: Female

DRUGS (6)
  1. ELISOR TABS [Suspect]
     Dosage: DOSAGE FORM = TABLET.
     Route: 048
  2. COZAAR [Suspect]
     Route: 048
  3. LASIX [Suspect]
     Route: 048
  4. DISCOTRINE [Suspect]
     Route: 062
  5. CEFAMANDOLE [Interacting]
     Route: 042
     Dates: start: 20070502, end: 20070503
  6. PREVISCAN [Interacting]
     Route: 048

REACTIONS (7)
  - DEATH [None]
  - DRUG INTERACTION [None]
  - HAEMATOMA [None]
  - INTERNATIONAL NORMALISED RATIO INCREASED [None]
  - MELAENA [None]
  - OVERDOSE [None]
  - SHOCK HAEMORRHAGIC [None]
